FAERS Safety Report 4652478-6 (Version None)
Quarter: 2005Q2

REPORT INFORMATION
  Report Type: 
  Country: None (occurrence: None)
  Receive Date: 20050502
  Receipt Date: 20050422
  Transmission Date: 20051028
  Serious: Yes (Hospitalization)
  Sender: FDA-Public Use
  Company Number: 2005-02-1250

PATIENT
  Age: 64 Year
  Sex: Male

DRUGS (8)
  1. PEG-INTRON [Suspect]
     Indication: HEPATITIS C
     Dosage: 80 MCG QW SUBCUTANEOUS
     Route: 058
     Dates: start: 20050203, end: 20050210
  2. REBETOL [Suspect]
     Indication: HEPATITIS C
     Dosage: 600 MG ORAL
     Route: 048
     Dates: start: 20050203, end: 20050210
  3. SAIREI-TO GRANULES [Concomitant]
  4. BASEN TABLETS [Concomitant]
  5. FAMOTIDINE ORAL POWDER [Concomitant]
  6. MARZULENE S GRANULES [Concomitant]
  7. URSO TABLETS [Concomitant]
  8. GASTER [Concomitant]

REACTIONS (5)
  - ABDOMINAL DISTENSION [None]
  - ABDOMINAL PAIN [None]
  - GASTROINTESTINAL HAEMORRHAGE [None]
  - ILEUS [None]
  - POSTOPERATIVE ADHESION [None]
